FAERS Safety Report 6675273-5 (Version None)
Quarter: 2010Q2

REPORT INFORMATION
  Report Type: 
  Country: None (occurrence: None)
  Receive Date: 20100409
  Receipt Date: 20091230
  Transmission Date: 20101027
  Serious: No
  Sender: FDA-Public Use
  Company Number: A0837094A

PATIENT
  Age: 63 Year
  Sex: Female

DRUGS (3)
  1. TYKERB [Suspect]
     Indication: BREAST CANCER
     Dosage: 5TAB PER DAY
     Route: 048
     Dates: start: 20091130
  2. DIPHEN/ATROP [Concomitant]
  3. BLOOD PRESSURE MEDICATION [Concomitant]

REACTIONS (1)
  - DIARRHOEA [None]
